FAERS Safety Report 4889322-8 (Version None)
Quarter: 2006Q1

REPORT INFORMATION
  Report Type: 
  Country: None (occurrence: None)
  Receive Date: 20060120
  Receipt Date: 20060120
  Transmission Date: 20060701
  Serious: Yes (Death, Hospitalization)
  Sender: FDA-Public Use
  Company Number: None

PATIENT
  Sex: Male

DRUGS (14)
  1. GATIFLOXACIN [Suspect]
     Indication: GENITOURINARY OPERATION
     Dosage: 200 MG  DAILY  PO
     Route: 048
     Dates: start: 20051013, end: 20051014
  2. GLYBURIDE [Suspect]
     Indication: DIABETES MELLITUS
     Dosage: 2.5 MG  BID  PO  (DURATION: AT LEAST PAST 7 YRS)
     Route: 048
  3. ATENOLOL [Concomitant]
  4. CLONIDINE [Concomitant]
  5. DOCUSATE [Concomitant]
  6. DONEPEZIL HCL [Concomitant]
  7. FELODIPINE [Concomitant]
  8. FERROUS SULFATE TAB [Concomitant]
  9. FINASTERIDE [Concomitant]
  10. HYDRALAZINE [Concomitant]
  11. HYDROCODONE BITARTRATE + ACETAMINOPHEN [Concomitant]
  12. OMEPRAZOLE [Concomitant]
  13. OXYBUTYNIN [Concomitant]
  14. COTRIM [Concomitant]

REACTIONS (2)
  - COMA [None]
  - ENCEPHALOPATHY [None]
